FAERS Safety Report 5731965-3 (Version None)
Quarter: 2008Q2

REPORT INFORMATION
  Report Type: 
  Country: None (occurrence: None)
  Receive Date: 20080506
  Receipt Date: 20080421
  Transmission Date: 20081010
  Serious: Yes (Hospitalization)
  Sender: FDA-Public Use
  Company Number: SPV1-2008-00946

PATIENT
  Sex: Female

DRUGS (2)
  1. MIDON(MIDODRINE HYDROCHLORIDE) TABLET [Suspect]
     Indication: ORTHOSTATIC HYPOTENSION
     Dosage: ORAL
     Route: 048
  2. FLUDROCORTICOSONE (FLUDROCORTISONE) [Concomitant]

REACTIONS (4)
  - CONDITION AGGRAVATED [None]
  - DRUG INEFFECTIVE [None]
  - ORTHOSTATIC HYPOTENSION [None]
  - PHARMACEUTICAL PRODUCT COMPLAINT [None]
